FAERS Safety Report 20350075 (Version 1)
Quarter: 2022Q1

REPORT INFORMATION
  Report Type: Spontaneous
  Country: US (occurrence: None)
  Receive Date: 20220119
  Receipt Date: 20220119
  Transmission Date: 20220424
  Serious: Yes (Hospitalization)
  Sender: FDA-Public Use
  Company Number: None

PATIENT
  Age: 29 Year
  Sex: Male

DRUGS (1)
  1. ZOLPIDEM [Suspect]
     Active Substance: ZOLPIDEM TARTRATE
     Dosage: FREQUENCY : AS NEEDED;?
     Route: 048
     Dates: start: 20210930, end: 20211021

REACTIONS (3)
  - Somnambulism [None]
  - Amnesia [None]
  - Abnormal behaviour [None]

NARRATIVE: CASE EVENT DATE: 20211021
